FAERS Safety Report 22299052 (Version 18)
Quarter: 2025Q1

REPORT INFORMATION
  Report Type: Spontaneous
  Country: US (occurrence: US)
  Receive Date: 20230509
  Receipt Date: 20250302
  Transmission Date: 20250409
  Serious: Yes (Hospitalization, Disabling, Other)
  Sender: AMGEN
  Company Number: US-HORIZON THERAPEUTICS-HZN-2023-003359

PATIENT
  Age: 62 Year
  Sex: Male
  Weight: 104 kg

DRUGS (114)
  1. TEPEZZA [Suspect]
     Active Substance: TEPROTUMUMAB-TRBW
     Indication: Graves^ disease
     Dosage: 1070 MILLIGRAM, Q3WK  FIRST INFUSION
     Route: 042
     Dates: start: 20210526
  2. TEPEZZA [Suspect]
     Active Substance: TEPROTUMUMAB-TRBW
     Indication: Endocrine ophthalmopathy
     Dosage: 2160 MILLIGRAM, Q3WK SECOND INFUSION
     Route: 042
     Dates: start: 20210616
  3. TEPEZZA [Suspect]
     Active Substance: TEPROTUMUMAB-TRBW
     Dosage: 2140 MILLIGRAM, Q3WK  THIRD INFUSION
     Route: 042
     Dates: start: 20210707
  4. TEPEZZA [Suspect]
     Active Substance: TEPROTUMUMAB-TRBW
     Dosage: 2140 MILLIGRAM, Q3WK FOURTH INFUSION
     Route: 042
     Dates: start: 20210728
  5. TEPEZZA [Suspect]
     Active Substance: TEPROTUMUMAB-TRBW
     Dosage: 2080 MILLIGRAM, Q3WK  FIFTH INFUSION
     Route: 042
     Dates: start: 20210818
  6. TEPEZZA [Suspect]
     Active Substance: TEPROTUMUMAB-TRBW
     Dosage: 2080 MILLIGRAM, Q3WK SIXTH INFUSION
     Route: 042
     Dates: start: 20210908
  7. TEPEZZA [Suspect]
     Active Substance: TEPROTUMUMAB-TRBW
     Dosage: 2080 MILLIGRAM, Q3WK SEVENTH INFUSION
     Route: 042
     Dates: start: 20210929
  8. TEPEZZA [Suspect]
     Active Substance: TEPROTUMUMAB-TRBW
     Dosage: 2140 MILLIGRAM, Q3WK EIGHTH INFUSION
     Route: 042
     Dates: start: 20211020, end: 20211020
  9. PREDNISONE [Suspect]
     Active Substance: PREDNISONE
     Indication: Product used for unknown indication
     Route: 065
  10. PREDNISONE [Suspect]
     Active Substance: PREDNISONE
     Route: 048
     Dates: start: 20230623, end: 20230623
  11. PREDNISONE [Suspect]
     Active Substance: PREDNISONE
     Route: 065
  12. PREDNISONE [Suspect]
     Active Substance: PREDNISONE
     Route: 065
  13. SODIUM CHLORIDE [Concomitant]
     Active Substance: SODIUM CHLORIDE
     Route: 065
  14. SODIUM CHLORIDE [Concomitant]
     Active Substance: SODIUM CHLORIDE
     Route: 065
  15. SODIUM CHLORIDE [Concomitant]
     Active Substance: SODIUM CHLORIDE
     Route: 065
  16. SODIUM CHLORIDE [Concomitant]
     Active Substance: SODIUM CHLORIDE
     Route: 065
  17. SODIUM CHLORIDE [Concomitant]
     Active Substance: SODIUM CHLORIDE
     Route: 065
  18. SODIUM CHLORIDE [Concomitant]
     Active Substance: SODIUM CHLORIDE
     Route: 065
  19. Water for injection/infusion [Concomitant]
     Route: 065
  20. Water for injection/infusion [Concomitant]
     Route: 065
  21. Water for injection/infusion [Concomitant]
     Route: 065
  22. Water for injection/infusion [Concomitant]
     Route: 065
  23. OCUFLOX [Concomitant]
     Active Substance: OFLOXACIN
     Route: 065
     Dates: start: 20230629
  24. ERYTHROMYCIN [Concomitant]
     Active Substance: ERYTHROMYCIN
     Dosage: 0.5 PERCENT, QID (1 APPLICATION EYE LEFT)
     Route: 065
     Dates: start: 20230622
  25. ERYTHROMYCIN [Concomitant]
     Active Substance: ERYTHROMYCIN
     Dosage: UNK, BID (1 APPLICATION EYE LEFT)
     Route: 047
  26. LIPITOR [Concomitant]
     Active Substance: ATORVASTATIN CALCIUM
     Route: 048
     Dates: start: 20201104, end: 20230609
  27. VIAGRA [Concomitant]
     Active Substance: SILDENAFIL CITRATE
     Dosage: 50 MILLIGRAM, QD, (100 MG TABLET, TAKE 1/2 TAB 30 MIN BEFORE SEX AS NEEDED)
     Route: 065
     Dates: start: 20201104, end: 20230609
  28. VIAGRA [Concomitant]
     Active Substance: SILDENAFIL CITRATE
     Route: 065
  29. ANDROGEL [Concomitant]
     Active Substance: TESTOSTERONE
     Dosage: 20.25 MILLIGRAM, QD (20.25 MG/1.25 GRAM (1.62 %) PUMP TRANSDERMAL GEL APPLY 3 DEPRESSIONS TO SKIN EV
     Route: 065
     Dates: start: 20200518, end: 20230609
  30. LOVAZA [Concomitant]
     Active Substance: OMEGA-3-ACID ETHYL ESTERS
     Dosage: 2 GRAM, BID (1 GRAM CAPSULE TAKE 2 CAPSULES BY MOUTH 2 (TWO) TIMES DAILY)
     Route: 048
     Dates: start: 20200121, end: 20240225
  31. LOVAZA [Concomitant]
     Active Substance: OMEGA-3-ACID ETHYL ESTERS
     Route: 065
  32. ASPIRIN [Concomitant]
     Active Substance: ASPIRIN
     Route: 048
     Dates: end: 20230609
  33. LOTRISONE [Concomitant]
     Active Substance: BETAMETHASONE DIPROPIONATE\CLOTRIMAZOLE
     Dosage: UNK, BID (1-0.05 % CREAM APPLY 1 APPLICATION)
     Route: 061
  34. CRESTOR [Concomitant]
     Active Substance: ROSUVASTATIN CALCIUM
     Route: 048
     Dates: start: 20230719, end: 20230926
  35. CRESTOR [Concomitant]
     Active Substance: ROSUVASTATIN CALCIUM
     Route: 048
     Dates: end: 20231106
  36. PRAVACHOL [Concomitant]
     Active Substance: PRAVASTATIN SODIUM
     Route: 048
     Dates: start: 20230926
  37. TESTOSTERONE [Concomitant]
     Active Substance: TESTOSTERONE
     Dosage: UNK, QD,  30 MG/ACTUATION (1.5 ML) SLPM USE 2 PUMPS ON SKIN DAILY AS DIRECTED
     Route: 061
     Dates: end: 20230817
  38. PRILOSEC [Concomitant]
     Active Substance: OMEPRAZOLE MAGNESIUM
     Dosage: 20 MILLIGRAM, QD
     Route: 048
     Dates: start: 20230926, end: 20240205
  39. OXYCONTIN [Concomitant]
     Active Substance: OXYCODONE HYDROCHLORIDE
     Route: 065
  40. SHINGRIX [Concomitant]
     Active Substance: RECOMBINANT VARICELLA ZOSTER VIRUS (VZV) GLYCOPROTEIN E
     Route: 065
  41. ONDANSETRON HYDROCHLORIDE [Concomitant]
     Active Substance: ONDANSETRON HYDROCHLORIDE
     Route: 065
  42. ONDANSETRON HYDROCHLORIDE [Concomitant]
     Active Substance: ONDANSETRON HYDROCHLORIDE
     Route: 040
     Dates: start: 20231006
  43. DOCUSATE SODIUM [Concomitant]
     Active Substance: DOCUSATE SODIUM
     Dosage: 100 MILLIGRAM, BID (SOFT GEL)
     Route: 048
  44. AMOXICILLIN\CLAVULANATE POTASSIUM [Concomitant]
     Active Substance: AMOXICILLIN\CLAVULANATE POTASSIUM
     Route: 065
  45. TOBRAMYCIN AND DEXAMETHASONE [Concomitant]
     Active Substance: DEXAMETHASONE\TOBRAMYCIN
     Dosage: 1 DROP, Q8H (EYE LEFT) (0.1%-0.3% OPHTHALMIC SUSPENSION)
     Route: 047
  46. METHYLPREDNISOLONE [Concomitant]
     Active Substance: METHYLPREDNISOLONE
     Route: 065
  47. DEXAMETHASONE\NEOMYCIN\POLYMYXIN B [Concomitant]
     Active Substance: DEXAMETHASONE\NEOMYCIN\POLYMYXIN B
     Dosage: 1 DROP, Q6H (0.1% 5ML OPTH SUSP)
     Route: 047
  48. BOOSTRIX [Concomitant]
     Active Substance: TETANUS TOXOID, REDUCED DIPHTHERIA TOXOID AND ACELLULAR PERTUSSIS VACCINE, ADSORBED ANTIGENS
     Route: 065
  49. FLUCELVAX NOS [Concomitant]
     Active Substance: INFLUENZA A VIRUS A/BRISBANE/10/2010 (H1N1) ANTIGEN (MDCK CELL DERIVED, PROPIOLACTONE INACTIVATED)\I
     Route: 065
  50. COVID-19 vaccine [Concomitant]
     Route: 065
  51. MELOXICAM [Concomitant]
     Active Substance: MELOXICAM
     Route: 065
  52. AXIRON [Concomitant]
     Active Substance: TESTOSTERONE
     Dosage: 30 MILLIGRAM, QD  (2 PUMPS ON SKIN)
     Route: 061
  53. AXIRON [Concomitant]
     Active Substance: TESTOSTERONE
     Dosage: UNK, QD (USE 2 PUMPS ON SKIN) (30 MG/ACT)
     Route: 061
     Dates: start: 20230817
  54. MAXITROL [Concomitant]
     Active Substance: DEXAMETHASONE\NEOMYCIN SULFATE\POLYMYXIN B SULFATE
     Dosage: 1 DROP, Q6H
     Route: 061
     Dates: start: 20230622
  55. MAXITROL [Concomitant]
     Active Substance: DEXAMETHASONE\NEOMYCIN SULFATE\POLYMYXIN B SULFATE
     Dosage: UNK, TID
     Route: 061
  56. MAXITROL [Concomitant]
     Active Substance: DEXAMETHASONE\NEOMYCIN SULFATE\POLYMYXIN B SULFATE
     Dosage: 0.1 PERCENT, TID  (APPLY A RIBBON TO THE LEFT 3 TIMES PER DAY X 1 WEEK)
     Route: 047
     Dates: start: 20231003, end: 20231010
  57. FLONASE [Concomitant]
     Active Substance: FLUTICASONE PROPIONATE
     Dosage: 50 MICROGRAM, QD  (MCG/INH)(2 SPRAYS INTRANASAL)
     Route: 045
  58. FLONASE [Concomitant]
     Active Substance: FLUTICASONE PROPIONATE
     Route: 065
  59. IBUPROFEN [Concomitant]
     Active Substance: IBUPROFEN
     Dosage: 800 MILLIGRAM, Q8H
     Route: 048
  60. FISH OIL [Concomitant]
     Active Substance: FISH OIL
     Route: 065
  61. OMEPRAZOLE [Concomitant]
     Active Substance: OMEPRAZOLE
     Route: 065
  62. AUGMENTIN [Concomitant]
     Active Substance: AMOXICILLIN\CLAVULANATE POTASSIUM
     Dosage: 1000 MILLIGRAM, Q12H ( 875 MG-125 MG FOR SEVEN DAYS)
     Route: 048
  63. COLACE [Concomitant]
     Active Substance: DOCUSATE SODIUM
     Dosage: 100 MILLIGRAM, BID (1 CAPSULE)
     Route: 048
     Dates: start: 20230622
  64. MEDROL [Concomitant]
     Active Substance: METHYLPREDNISOLONE
     Indication: Immunisation
     Route: 065
  65. ONDANSETRON [Concomitant]
     Active Substance: ONDANSETRON
     Indication: Nausea
     Dosage: 4 MILLIGRAM, Q8H
     Route: 048
  66. ONDANSETRON [Concomitant]
     Active Substance: ONDANSETRON
     Dosage: 4 MILLIGRAM, Q6H
     Route: 048
  67. ONDANSETRON [Concomitant]
     Active Substance: ONDANSETRON
     Route: 040
  68. SODIUM CHLORIDE [Concomitant]
     Active Substance: SODIUM CHLORIDE
     Dosage: 0.65 PERCENT, QH (2 SPRAYS INTRANASAL EVERY HOUR IN EACH NOSTRIL WHILE)
     Route: 045
     Dates: start: 20230622
  69. TOBRADEX [Concomitant]
     Active Substance: DEXAMETHASONE\TOBRAMYCIN
     Dosage: 1 DROP, QID
     Route: 047
  70. TOBRADEX [Concomitant]
     Active Substance: DEXAMETHASONE\TOBRAMYCIN
     Dosage: UNK, QD
     Route: 047
  71. UNASYN [Concomitant]
     Active Substance: AMPICILLIN SODIUM\SULBACTAM SODIUM
     Indication: Prophylaxis
     Dosage: 3 GRAM, Q6H
     Route: 040
     Dates: start: 20230622
  72. ZOFRAN [Concomitant]
     Active Substance: ONDANSETRON HYDROCHLORIDE
     Dosage: 4 MILLIGRAM, Q6H
     Route: 048
     Dates: start: 20230622
  73. ZOFRAN [Concomitant]
     Active Substance: ONDANSETRON HYDROCHLORIDE
     Route: 040
     Dates: start: 20231006, end: 20231007
  74. AMPICILLIN SODIUM\SULBACTAM SODIUM [Concomitant]
     Active Substance: AMPICILLIN SODIUM\SULBACTAM SODIUM
     Dosage: 3 GRAM, Q6H (200 ML/HR, IVPB)
     Route: 040
  75. OXYMETAZOLINE [Concomitant]
     Active Substance: OXYMETAZOLINE
     Dosage: 0.05 PERCENT, Q12H (1 SPRAY)
     Route: 045
  76. OXYMETAZOLINE [Concomitant]
     Active Substance: OXYMETAZOLINE
     Route: 061
  77. LIDOCAINE [Concomitant]
     Active Substance: LIDOCAINE
     Route: 040
     Dates: start: 20230622, end: 20230622
  78. LIDOCAINE [Concomitant]
     Active Substance: LIDOCAINE
     Route: 040
     Dates: start: 20231006
  79. EPINEPHRINE [Concomitant]
     Active Substance: EPINEPHRINE
     Route: 065
  80. TETRACAINE [Concomitant]
     Active Substance: TETRACAINE
     Route: 061
  81. THROMBIN [Concomitant]
     Active Substance: THROMBIN
     Route: 061
  82. MIDAZOLAM [Concomitant]
     Active Substance: MIDAZOLAM
     Route: 040
     Dates: start: 20230622, end: 20230622
  83. FENTANYL [Concomitant]
     Active Substance: FENTANYL
     Route: 040
     Dates: start: 20230622, end: 20230622
  84. FENTANYL [Concomitant]
     Active Substance: FENTANYL
     Route: 040
  85. PROPOFOL [Concomitant]
     Active Substance: PROPOFOL
     Route: 040
  86. PROPOFOL [Concomitant]
     Active Substance: PROPOFOL
     Route: 040
  87. PROPOFOL [Concomitant]
     Active Substance: PROPOFOL
     Route: 065
     Dates: start: 20231006
  88. ROCURONIUM [Concomitant]
     Active Substance: ROCURONIUM BROMIDE
     Route: 040
     Dates: start: 20230622, end: 20230622
  89. EPHEDRINE [Concomitant]
     Active Substance: EPHEDRINE
     Route: 040
     Dates: start: 20230622, end: 20230622
  90. CEFAZOLIN [Concomitant]
     Active Substance: CEFAZOLIN
     Route: 040
     Dates: start: 20230622, end: 20230622
  91. DEXAMETHASONE [Concomitant]
     Active Substance: DEXAMETHASONE
     Route: 040
     Dates: start: 20230622, end: 20230622
  92. DILAUDID [Concomitant]
     Active Substance: HYDROMORPHONE HYDROCHLORIDE
     Route: 040
     Dates: start: 20230622, end: 20230622
  93. DILAUDID [Concomitant]
     Active Substance: HYDROMORPHONE HYDROCHLORIDE
     Dosage: 0.26 MILLIGRAM, Q15MIN
     Route: 040
     Dates: start: 20231006, end: 20231007
  94. LABETALOL [Concomitant]
     Active Substance: LABETALOL
     Route: 040
  95. OFIRMEV [Concomitant]
     Active Substance: ACETAMINOPHEN
     Route: 040
  96. SUGAMMADEX [Concomitant]
     Active Substance: SUGAMMADEX
     Route: 040
     Dates: start: 20230622, end: 20230622
  97. LACTATED RINGERS SOLUTION [Concomitant]
     Active Substance: CALCIUM CHLORIDE\POTASSIUM CHLORIDE\SODIUM CHLORIDE\SODIUM LACTATE
     Route: 065
     Dates: start: 20230622, end: 20230622
  98. LACTATED RINGERS SOLUTION [Concomitant]
     Active Substance: CALCIUM CHLORIDE\POTASSIUM CHLORIDE\SODIUM CHLORIDE\SODIUM LACTATE
     Route: 040
     Dates: start: 20231006, end: 20231007
  99. AFRIN [Concomitant]
     Active Substance: OXYMETAZOLINE HYDROCHLORIDE
     Indication: Sinus disorder
     Dosage: UNK, Q12H
     Route: 045
     Dates: start: 20230622, end: 20230623
  100. AFRIN [Concomitant]
     Active Substance: OXYMETAZOLINE HYDROCHLORIDE
     Dosage: UNK, BID (3 DAYS)
  101. DIPHENHYDRAMINE [Concomitant]
     Active Substance: DIPHENHYDRAMINE
     Indication: Nausea
     Route: 040
     Dates: start: 20230622
  102. DIPHENHYDRAMINE [Concomitant]
     Active Substance: DIPHENHYDRAMINE
     Indication: Vomiting
  103. DIPRIVAN [Concomitant]
     Active Substance: PROPOFOL
     Route: 040
     Dates: start: 20230622, end: 20230622
  104. DIPRIVAN [Concomitant]
     Active Substance: PROPOFOL
     Route: 040
     Dates: start: 20231006
  105. POLYVINYL ALCOHOL [Concomitant]
     Active Substance: POLYVINYL ALCOHOL
     Dosage: UNK, QID
     Route: 065
  106. SUBLIMAZE [Concomitant]
     Active Substance: FENTANYL CITRATE
     Route: 040
     Dates: start: 20231006
  107. TORADOL [Concomitant]
     Active Substance: KETOROLAC TROMETHAMINE
     Route: 030
     Dates: start: 20231006
  108. DECADRON [Concomitant]
     Active Substance: DEXAMETHASONE
     Route: 040
     Dates: start: 20231006
  109. MYDFRIN [Concomitant]
     Active Substance: PHENYLEPHRINE HYDROCHLORIDE
     Route: 065
     Dates: start: 20231006
  110. ALTACAINE [Concomitant]
     Active Substance: TETRACAINE HYDROCHLORIDE
     Route: 047
     Dates: start: 20231006
  111. ATORVASTATIN [Concomitant]
     Active Substance: ATORVASTATIN
     Dosage: 20 MILLIGRAM, QD
     Route: 065
  112. BETAMETHASONE\CLOTRIMAZOLE [Concomitant]
     Active Substance: BETAMETHASONE\CLOTRIMAZOLE
  113. OMEGA-3 FATTY ACIDS [Concomitant]
     Active Substance: OMEGA-3 FATTY ACIDS
  114. SILDENAFIL [Concomitant]
     Active Substance: SILDENAFIL
     Dosage: 100 MILLIGRAM, QD (HALF TABLET ONCE DAILY)

REACTIONS (48)
  - Endocrine ophthalmopathy [Not Recovered/Not Resolved]
  - Deafness permanent [Not Recovered/Not Resolved]
  - Erectile dysfunction [Not Recovered/Not Resolved]
  - Autoimmune thyroiditis [Unknown]
  - Cataract nuclear [Unknown]
  - Ankle fracture [Unknown]
  - Body temperature decreased [Unknown]
  - Strabismus [Recovering/Resolving]
  - Bone fragmentation [Unknown]
  - Dermatosis [Not Recovered/Not Resolved]
  - Anxiety [Not Recovered/Not Resolved]
  - Emotional distress [Not Recovered/Not Resolved]
  - Dyspepsia [Not Recovered/Not Resolved]
  - Thyroid stimulating immunoglobulin increased [Not Recovered/Not Resolved]
  - Arthralgia [Not Recovered/Not Resolved]
  - Hypogonadism male [Not Recovered/Not Resolved]
  - Obesity [Not Recovered/Not Resolved]
  - Eye operation [Unknown]
  - Red blood cell sedimentation rate increased [Unknown]
  - Blood cholesterol increased [Unknown]
  - Very low density lipoprotein increased [Unknown]
  - Total cholesterol/HDL ratio decreased [Unknown]
  - Blood triglycerides increased [Unknown]
  - Alanine aminotransferase increased [Unknown]
  - Vitamin D decreased [Unknown]
  - Blood albumin decreased [Unknown]
  - Erythema of eyelid [Unknown]
  - Conjunctival oedema [Unknown]
  - Eye inflammation [Unknown]
  - Conjunctival haemorrhage [Recovering/Resolving]
  - Chronic sinusitis [Unknown]
  - Nasal turbinate hypertrophy [Unknown]
  - Tonsillitis [Unknown]
  - Pinguecula [Unknown]
  - Glycosylated haemoglobin increased [Unknown]
  - Fatigue [Not Recovered/Not Resolved]
  - Blood glucose increased [Unknown]
  - Heart rate decreased [Unknown]
  - Wound complication [Unknown]
  - Tenderness [Unknown]
  - Mean cell volume decreased [Unknown]
  - Eosinophil count increased [Unknown]
  - Sleep apnoea syndrome [Unknown]
  - Snoring [Unknown]
  - Nausea [Unknown]
  - Vomiting [Unknown]
  - Extraocular muscle disorder [Unknown]
  - Respiratory rate decreased [Unknown]

NARRATIVE: CASE EVENT DATE: 20230110
